FAERS Safety Report 6609775-4 (Version None)
Quarter: 2010Q1

REPORT INFORMATION
  Report Type: 
  Country: None (occurrence: None)
  Receive Date: 20100224
  Receipt Date: 20100222
  Transmission Date: 20100710
  Serious: Yes (Death, Life-Threatening, Hospitalization)
  Sender: FDA-Public Use
  Company Number: 2010SP010703

PATIENT
  Age: 66 Year
  Sex: Female

DRUGS (6)
  1. TEMODAL [Suspect]
     Indication: GLIOBLASTOMA
     Dosage: 250 MG; QD; PO
     Route: 048
     Dates: start: 20090105, end: 20090204
  2. CORTANCYL (PREDNISONE /00044701/) [Suspect]
     Indication: DRUG USE FOR UNKNOWN INDICATION
     Dosage: 40 MG; QD; PO
     Route: 048
  3. LAMICTAL [Suspect]
     Indication: DRUG USE FOR UNKNOWN INDICATION
     Dosage: 50 MG; BID; PO
  4. BACTRIM [Suspect]
     Indication: PROPHYLAXIS
     Dosage: 1 DF; TID; PO
     Route: 048
  5. XANAX [Suspect]
     Indication: DRUG USE FOR UNKNOWN INDICATION
     Dosage: 0.25 MG; QD; PO
     Route: 048
  6. EUPANTOL (PANTOPRAZOLE /01263201/) [Suspect]
     Indication: DRUG USE FOR UNKNOWN INDICATION
     Dosage: ; PO
     Route: 048

REACTIONS (9)
  - BONE MARROW FAILURE [None]
  - DISEASE RECURRENCE [None]
  - EPISTAXIS [None]
  - HAEMORRHAGE [None]
  - METABOLIC DISORDER [None]
  - MULTI-ORGAN FAILURE [None]
  - PURPURA [None]
  - PYREXIA [None]
  - RENAL FAILURE [None]
